FAERS Safety Report 10867583 (Version 1)
Quarter: 2015Q1

REPORT INFORMATION
  Report Type: Spontaneous
  Country: US (occurrence: US)
  Receive Date: 20150225
  Receipt Date: 20150225
  Transmission Date: 20150721
  Serious: Yes (Congenital Anomaly, Other)
  Sender: FDA-Public Use
  Company Number: US-APOTEX-2015AP006777

PATIENT
  Sex: Female

DRUGS (3)
  1. PRENATAL VITAMINS                  /07426201/ [Concomitant]
     Active Substance: ASCORBIC ACID\BIOTIN\MINERALS\NIACIN\RETINOL\TOCOPHEROL\VITAMIN B\VITAMIN D
     Indication: PRODUCT USED FOR UNKNOWN INDICATION
     Route: 064
  2. PAXIL [Suspect]
     Active Substance: PAROXETINE HYDROCHLORIDE
     Indication: PRODUCT USED FOR UNKNOWN INDICATION
     Dosage: 10 MG, DAILY
     Route: 064
     Dates: start: 19971201
  3. PAXIL [Suspect]
     Active Substance: PAROXETINE HYDROCHLORIDE
     Dosage: 15 MG, DAILY
     Dates: start: 19971215

REACTIONS (7)
  - Spina bifida [Unknown]
  - Foetal exposure during pregnancy [Unknown]
  - Congenital foot malformation [Unknown]
  - Congenital spondylolysis [Unknown]
  - Talipes [Unknown]
  - Otitis media [Unknown]
  - Foot deformity [Unknown]
